FAERS Safety Report 6878845-8 (Version None)
Quarter: 2010Q3

REPORT INFORMATION
  Report Type: 
  Country: None (occurrence: None)
  Receive Date: 20100728
  Receipt Date: 20100712
  Transmission Date: 20110219
  Serious: Yes (Hospitalization)
  Sender: FDA-Public Use
  Company Number: PHHY2010DE34445

PATIENT
  Sex: Male
  Weight: 120 kg

DRUGS (4)
  1. CARBAMAZEPINE [Suspect]
     Indication: EPILEPSY
     Dosage: 0.5-0-0 DF/DAILY
     Route: 048
     Dates: end: 20100315
  2. CARBAMAZEPINE [Suspect]
     Dosage: 0.5-0-1 DF/DAILY
  3. LAMOTRIGINE [Suspect]
     Indication: EPILEPSY
     Dosage: 200 MG, (0.5-0-0.5 DF DAILY)
     Route: 048
  4. LAMOTRIGINE [Suspect]
     Dosage: 100 MG, (1-0-1DF PER DAY)

REACTIONS (11)
  - BLOOD CHOLESTEROL INCREASED [None]
  - BLOOD TRIGLYCERIDES INCREASED [None]
  - CONVULSION [None]
  - DYSLIPIDAEMIA [None]
  - HEPATIC STEATOSIS [None]
  - HYPONATRAEMIA [None]
  - OBESITY [None]
  - PANCREAS LIPOMATOSIS [None]
  - SPLENOMEGALY [None]
  - THIRST [None]
  - TYPE 2 DIABETES MELLITUS [None]
